FAERS Safety Report 11177917 (Version 1)
Quarter: 2015Q2

REPORT INFORMATION
  Report Type: Spontaneous
  Country: IN (occurrence: IN)
  Receive Date: 20150610
  Receipt Date: 20150610
  Transmission Date: 20150821
  Serious: Yes (Hospitalization)
  Sender: FDA-Public Use
  Company Number: IN-PFIZER INC-2015138181

PATIENT
  Age: 78 Year
  Sex: Male

DRUGS (1)
  1. DOLONEX [Suspect]
     Active Substance: PIROXICAM
     Dosage: 1 UNK, SINGLE
     Route: 030
     Dates: start: 20150104

REACTIONS (1)
  - Ventricular tachycardia [Unknown]

NARRATIVE: CASE EVENT DATE: 20150104
